FAERS Safety Report 26165202 (Version 1)
Quarter: 2025Q4

REPORT INFORMATION
  Report Type: Spontaneous
  Country: US (occurrence: US)
  Receive Date: 20251216
  Receipt Date: 20251216
  Transmission Date: 20260117
  Serious: Yes (Death)
  Sender: AMGEN
  Company Number: US-AMGEN-USASP2025244415

PATIENT
  Age: 35 Year
  Sex: Female

DRUGS (3)
  1. BEVACIZUMAB [Suspect]
     Active Substance: BEVACIZUMAB
     Indication: Brain stem glioma
     Dosage: UNK, (RECEIVED FOUR CYCLES)
     Route: 065
     Dates: start: 202405, end: 202407
  2. DIETARY SUPPLEMENT\HERBALS\INDIAN FRANKINCENSE [Concomitant]
     Active Substance: DIETARY SUPPLEMENT\HERBALS\INDIAN FRANKINCENSE
     Indication: Brain stem glioma
     Dosage: UNK UNK, QD
     Dates: start: 2024
  3. OXYGEN [Concomitant]
     Active Substance: OXYGEN
     Indication: Brain stem glioma
     Dosage: UNK
     Dates: start: 2024

REACTIONS (2)
  - Pneumonia aspiration [Fatal]
  - Brain stem glioma [Fatal]

NARRATIVE: CASE EVENT DATE: 20250401
